FAERS Safety Report 6932828-8 (Version None)
Quarter: 2010Q3

REPORT INFORMATION
  Report Type: 
  Country: None (occurrence: None)
  Receive Date: 20100819
  Receipt Date: 20100809
  Transmission Date: 20110219
  Serious: Yes (Hospitalization)
  Sender: FDA-Public Use
  Company Number: SE-PFIZER INC-2010091585

PATIENT
  Age: 87 Year
  Sex: Male
  Weight: 81.9 kg

DRUGS (12)
  1. BLINDED *NO SUBJECT DRUG [Suspect]
     Indication: CARDIAC FAILURE
     Dosage: UNK
     Route: 048
     Dates: start: 20090116
  2. BLINDED *PLACEBO [Suspect]
     Indication: CARDIAC FAILURE
     Dosage: UNK
     Route: 048
     Dates: start: 20090116
  3. EPLERENONE [Suspect]
     Indication: CARDIAC FAILURE
     Dosage: UNK
     Route: 048
     Dates: start: 20090116
  4. OMEPRAZOLE [Concomitant]
     Dosage: 20 MG, UNK
     Route: 048
     Dates: start: 20080101
  5. WARFARIN [Concomitant]
     Dosage: 2.5 MG, UNK
     Route: 048
     Dates: start: 20061201
  6. ACETYLSALICYLIC ACID [Concomitant]
     Dosage: 75 MG, UNK
     Route: 048
     Dates: start: 20090526
  7. FUROSEMIDE [Concomitant]
     Dosage: 40 MG, UNK
     Route: 048
     Dates: start: 20090930
  8. METOPROLOL [Concomitant]
     Dosage: 50 MG, UNK
     Route: 048
     Dates: start: 20090221
  9. ENALAPRIL [Concomitant]
     Dosage: 20 MG, UNK
     Route: 048
     Dates: start: 20060911
  10. CANDESARTAN [Concomitant]
     Dosage: 4 MG, UNK
     Route: 048
     Dates: start: 20100603
  11. SIMVASTATIN [Concomitant]
     Dosage: 20 MG, UNK
     Route: 048
     Dates: start: 20060911
  12. ALLOPURINOL [Concomitant]
     Dosage: 100 MG, UNK
     Route: 048
     Dates: start: 20091223

REACTIONS (1)
  - BURSITIS [None]
